FAERS Safety Report 11087876 (Version 1)
Quarter: 2015Q2

REPORT INFORMATION
  Report Type: Report from Study
  Country: BR (occurrence: BR)
  Receive Date: 20150504
  Receipt Date: 20150504
  Transmission Date: 20150821
  Serious: Yes (Other)
  Sender: FDA-Public Use
  Company Number: PHHY2015BR048864

PATIENT
  Age: 79 Year
  Sex: Female
  Weight: 50 kg

DRUGS (4)
  1. LETROZOL [Suspect]
     Active Substance: LETROZOLE
     Indication: RECURRENT CANCER
     Route: 065
  2. FEMARA [Suspect]
     Active Substance: LETROZOLE
     Indication: RECURRENT CANCER
     Route: 065
  3. GALVUS MET [Suspect]
     Active Substance: METFORMIN HYDROCHLORIDE\VILDAGLIPTIN
     Indication: DIABETES MELLITUS
     Dosage: 1 DF, BID (1 TABLET AFTER BREAKFAST AND 1 TABLET AFTER DINNER)
     Route: 065
  4. DIOVAN [Suspect]
     Active Substance: VALSARTAN
     Indication: HYPERTENSION
     Dosage: 1 DF, QD
     Route: 065

REACTIONS (5)
  - Recurrent cancer [Recovering/Resolving]
  - Throat irritation [Unknown]
  - Hypersensitivity [Recovering/Resolving]
  - Fatigue [Unknown]
  - Cough [Unknown]

NARRATIVE: CASE EVENT DATE: 201307
